FAERS Safety Report 9134554 (Version 1)
Quarter: 2013Q1

REPORT INFORMATION
  Report Type: Spontaneous
  Country: ES (occurrence: ES)
  Receive Date: 20130304
  Receipt Date: 20130304
  Transmission Date: 20140127
  Serious: Yes (Other)
  Sender: FDA-Public Use
  Company Number: PHHY2013ES018458

PATIENT
  Age: 26 Year
  Sex: Male

DRUGS (1)
  1. CLOZAPINE [Suspect]
     Indication: SCHIZOPHRENIA, PARANOID TYPE
     Dosage: 250 MG, PER DAY

REACTIONS (4)
  - Hyperprolactinaemia [Recovering/Resolving]
  - Gynaecomastia [Recovered/Resolved]
  - Erectile dysfunction [Recovering/Resolving]
  - Libido decreased [Recovering/Resolving]
